FAERS Safety Report 9457550 (Version 1)
Quarter: 2013Q3

REPORT INFORMATION
  Report Type: Spontaneous
  Country: BR (occurrence: BR)
  Receive Date: 20130814
  Receipt Date: 20130814
  Transmission Date: 20140515
  Serious: Yes (Hospitalization)
  Sender: FDA-Public Use
  Company Number: BR-JNJFOC-20130805983

PATIENT
  Age: 60 Year
  Sex: Male

DRUGS (3)
  1. XARELTO [Suspect]
     Indication: PRODUCT USED FOR UNKNOWN INDICATION
     Route: 048
     Dates: start: 20130707
  2. TICAGRELOR [Concomitant]
     Route: 065
     Dates: start: 201307
  3. AAS [Concomitant]
     Route: 065
     Dates: start: 201307

REACTIONS (8)
  - Coronary artery disease [Unknown]
  - Chest pain [Unknown]
  - Troponin increased [Unknown]
  - Gastric ulcer [Recovered/Resolved]
  - Cholecystitis [Unknown]
  - Liver disorder [Unknown]
  - International normalised ratio increased [Unknown]
  - Activated partial thromboplastin time prolonged [Unknown]
